FAERS Safety Report 22923227 (Version 3)
Quarter: 2023Q4

REPORT INFORMATION
  Report Type: Report from Study
  Country: US (occurrence: US)
  Receive Date: 20230908
  Receipt Date: 20231111
  Transmission Date: 20240110
  Serious: Yes (Death)
  Sender: FDA-Public Use
  Company Number: US-002147023-NVSC2023US194433

PATIENT
  Age: 10 Year
  Sex: Male

DRUGS (2)
  1. ILARIS [Suspect]
     Active Substance: CANAKINUMAB
     Indication: Pyrexia
     Dosage: 80 MG, EVERY 4 WEEK (OTHER)
     Route: 058
     Dates: start: 20191129, end: 20230605
  2. ILARIS [Suspect]
     Active Substance: CANAKINUMAB
     Dosage: 80 MG, QMO
     Route: 058

REACTIONS (1)
  - Death [Fatal]

NARRATIVE: CASE EVENT DATE: 20230906
